FAERS Safety Report 9299907 (Version 1)
Quarter: 2013Q1

REPORT INFORMATION
  Report Type: Spontaneous
  Country: US (occurrence: None)
  Receive Date: 20130107
  Receipt Date: 20130107
  Transmission Date: 20140127
  Serious: Yes (Other)
  Sender: FDA-Public Use
  Company Number: PHEH2012US018666

PATIENT
  Age: 40 Year
  Sex: Male
  Weight: 88.4 kg

DRUGS (1)
  1. GILENYA (FTY) CAPSULE [Suspect]
     Route: 048
     Dates: start: 20120919

REACTIONS (2)
  - Heart rate decreased [None]
  - Electrocardiogram abnormal [None]
